FAERS Safety Report 10441160 (Version 4)
Quarter: 2015Q1

REPORT INFORMATION
  Report Type: Report from Study
  Country: FR (occurrence: FR)
  Receive Date: 20140909
  Receipt Date: 20150304
  Transmission Date: 20150720
  Serious: Yes (Hospitalization)
  Sender: FDA-Public Use
  Company Number: RW-SA-2014SA118897

PATIENT
  Age: 75 Year
  Sex: Male

DRUGS (24)
  1. 5 FU [Suspect]
     Active Substance: FLUOROURACIL
     Indication: COLORECTAL CANCER METASTATIC
     Route: 040
     Dates: start: 20140703, end: 20140703
  2. XATRAL [Concomitant]
     Active Substance: ALFUZOSIN
     Dates: start: 2009
  3. IRINOTECAN [Suspect]
     Active Substance: IRINOTECAN
     Indication: COLORECTAL CANCER METASTATIC
     Route: 041
     Dates: start: 20140731, end: 20140731
  4. INEXIUM [Concomitant]
     Active Substance: ESOMEPRAZOLE
     Dates: start: 20140623
  5. ATROPINE [Concomitant]
     Active Substance: ATROPINE
     Indication: PROPHYLAXIS
     Dates: start: 20140731, end: 20140731
  6. EMEND [Concomitant]
     Active Substance: APREPITANT
     Indication: PROPHYLAXIS
     Dates: start: 20140731, end: 20140802
  7. POLARAMINE [Concomitant]
     Active Substance: DEXCHLORPHENIRAMINE MALEATE
     Indication: PROPHYLAXIS
     Dates: start: 20140731, end: 20140731
  8. LEUCOVORIN [Suspect]
     Active Substance: LEUCOVORIN
     Indication: COLORECTAL CANCER METASTATIC
     Route: 041
     Dates: start: 20140703, end: 20140703
  9. METHYLPREDNISOLONE. [Concomitant]
     Active Substance: METHYLPREDNISOLONE
     Indication: PROPHYLAXIS
     Dates: start: 20140731, end: 20140731
  10. AFLIBERCEPT [Suspect]
     Active Substance: AFLIBERCEPT
     Indication: COLORECTAL CANCER METASTATIC
     Route: 041
     Dates: start: 20140703, end: 20140703
  11. IRINOTECAN [Suspect]
     Active Substance: IRINOTECAN
     Indication: COLORECTAL CANCER METASTATIC
     Route: 041
     Dates: start: 20140703, end: 20140703
  12. ANTIINFECTIVES/ANTISEPTICS IN COMB.WITH CORTI [Concomitant]
     Dates: start: 20140731
  13. FUROSEMIDE. [Concomitant]
     Active Substance: FUROSEMIDE
     Dates: start: 20140716
  14. LEUCOVORIN [Suspect]
     Active Substance: LEUCOVORIN
     Indication: COLORECTAL CANCER METASTATIC
     Route: 041
     Dates: start: 20140731, end: 20140731
  15. 5 FU [Suspect]
     Active Substance: FLUOROURACIL
     Indication: COLORECTAL CANCER METASTATIC
     Route: 041
     Dates: start: 20140731
  16. ONDASETRON [Concomitant]
     Active Substance: ONDANSETRON
     Indication: PROPHYLAXIS
     Dates: start: 20140731, end: 20140731
  17. LOXEN [Concomitant]
     Active Substance: NICARDIPINE HYDROCHLORIDE
     Dates: start: 20140722
  18. TAHOR [Concomitant]
     Active Substance: ATORVASTATIN CALCIUM
     Dates: start: 2004
  19. METFORMIN [Concomitant]
     Active Substance: METFORMIN HYDROCHLORIDE
     Dates: start: 2004
  20. AFLIBERCEPT [Suspect]
     Active Substance: AFLIBERCEPT
     Indication: COLORECTAL CANCER METASTATIC
     Route: 041
     Dates: start: 20140731, end: 20140731
  21. 5 FU [Suspect]
     Active Substance: FLUOROURACIL
     Indication: COLORECTAL CANCER METASTATIC
     Route: 041
     Dates: start: 20140703
  22. LANTUS [Concomitant]
     Active Substance: INSULIN GLARGINE
     Dates: start: 2004
  23. SOLUPRED [Concomitant]
     Active Substance: PREDNISOLONE
     Indication: PROPHYLAXIS
     Dates: start: 20140731, end: 20140802
  24. EMLA [Concomitant]
     Active Substance: LIDOCAINE\PRILOCAINE
     Indication: PROPHYLAXIS
     Dates: start: 20140731, end: 20140731

REACTIONS (2)
  - Renal failure [Recovered/Resolved]
  - General physical health deterioration [Recovered/Resolved]

NARRATIVE: CASE EVENT DATE: 20140814
